FAERS Safety Report 5430016-8 (Version None)
Quarter: 2007Q3

REPORT INFORMATION
  Report Type: 
  Country: None (occurrence: None)
  Receive Date: 20070829
  Receipt Date: 20070821
  Transmission Date: 20080115
  Serious: Yes (Hospitalization)
  Sender: FDA-Public Use
  Company Number: GB-PFIZER INC-2007066016

PATIENT
  Age: 82 Year
  Sex: Female

DRUGS (1)
  1. ISTIN [Suspect]
     Indication: TRANSIENT ISCHAEMIC ATTACK
     Dosage: DAILY DOSE:5MG

REACTIONS (4)
  - CAROTID ARTERY BYPASS [None]
  - CEREBROVASCULAR ACCIDENT [None]
  - DEPRESSION [None]
  - MALAISE [None]
